FAERS Safety Report 11625613 (Version 14)
Quarter: 2017Q1

REPORT INFORMATION
  Report Type: Spontaneous
  Country: US (occurrence: US)
  Receive Date: 20151013
  Receipt Date: 20170223
  Transmission Date: 20170428
  Serious: Yes (Hospitalization, Other)
  Sender: FDA-Public Use
  Company Number: US-ACTELION PHARMACEUTICALS US, INC.-A-US2015-125225

PATIENT
  Age: 51 Year
  Sex: Female
  Weight: 74.83 kg

DRUGS (6)
  1. VELETRI [Suspect]
     Active Substance: EPOPROSTENOL
     Indication: PULMONARY HYPERTENSION
     Dosage: 59 NG/KG, PER MIN
     Route: 042
     Dates: start: 20100714
  2. ADEMPAS [Concomitant]
     Active Substance: RIOCIGUAT
  3. COUMADIN [Concomitant]
     Active Substance: WARFARIN SODIUM
  4. OXYGEN. [Concomitant]
     Active Substance: OXYGEN
  5. VELETRI [Suspect]
     Active Substance: EPOPROSTENOL
     Dosage: 75 NG/KG, PER MIN
     Route: 042
  6. OPSUMIT [Suspect]
     Active Substance: MACITENTAN
     Indication: PULMONARY HYPERTENSION
     Dosage: 10 MG, QD
     Route: 048
     Dates: start: 20140130

REACTIONS (26)
  - Abdominal distension [Unknown]
  - Pain in jaw [Unknown]
  - Body temperature abnormal [Unknown]
  - Pneumonia [Unknown]
  - Musculoskeletal pain [Unknown]
  - Oropharyngeal pain [Unknown]
  - Flushing [Unknown]
  - Device alarm issue [Recovered/Resolved]
  - Thrombosis in device [Recovered/Resolved]
  - Complication associated with device [Unknown]
  - Retching [Unknown]
  - Dizziness postural [Unknown]
  - Dyspnoea [Unknown]
  - Splenomegaly [Unknown]
  - Productive cough [Unknown]
  - Chest pain [Unknown]
  - Headache [Unknown]
  - Gallbladder enlargement [Unknown]
  - Ocular hyperaemia [Unknown]
  - Rash [Unknown]
  - Abdominal pain upper [Unknown]
  - Oxygen saturation decreased [Unknown]
  - Hepatomegaly [Unknown]
  - Cough [Unknown]
  - Malaise [Unknown]
  - Gastric disorder [Unknown]

NARRATIVE: CASE EVENT DATE: 20160418
